FAERS Safety Report 5055298-6 (Version None)
Quarter: 2006Q3

REPORT INFORMATION
  Report Type: 
  Country: None (occurrence: None)
  Receive Date: 20060714
  Receipt Date: 20060706
  Transmission Date: 20061208
  Serious: Yes (Other)
  Sender: FDA-Public Use
  Company Number: 2006-01716

PATIENT
  Sex: Male

DRUGS (1)
  1. VELCADE [Suspect]
     Indication: MULTIPLE MYELOMA

REACTIONS (4)
  - BRADYCARDIA [None]
  - CREATININE RENAL CLEARANCE DECREASED [None]
  - SICK SINUS SYNDROME [None]
  - THERAPEUTIC RESPONSE DECREASED [None]
